FAERS Safety Report 10209953 (Version 3)
Quarter: 2016Q3

REPORT INFORMATION
  Report Type: Spontaneous
  Country: NO (occurrence: NO)
  Receive Date: 20140602
  Receipt Date: 20160917
  Transmission Date: 20161109
  Serious: Yes (Hospitalization, Other)
  Sender: FDA-Public Use
  Company Number: NO-RANBAXY-2014R1-81581

PATIENT
  Age: 81 Year
  Sex: Female

DRUGS (2)
  1. ATORVASTATIN [Suspect]
     Active Substance: ATORVASTATIN
     Indication: HYPERCHOLESTEROLAEMIA
     Dosage: 40 MG, DAILY
     Route: 065
  2. ATORVASTATIN [Suspect]
     Active Substance: ATORVASTATIN
     Indication: HYPERCHOLESTEROLAEMIA
     Dosage: 80 MG, DAILY
     Route: 065

REACTIONS (1)
  - Immune-mediated necrotising myopathy [Recovered/Resolved]

NARRATIVE: CASE EVENT DATE: 2008
